FAERS Safety Report 5044907-3 (Version None)
Quarter: 2006Q2

REPORT INFORMATION
  Report Type: 
  Country: None (occurrence: None)
  Receive Date: 20060601
  Receipt Date: 20060313
  Transmission Date: 20061013
  Serious: No
  Sender: FDA-Public Use
  Company Number: 2006-BP-02801BP

PATIENT
  Age: 66 Year
  Sex: Female

DRUGS (4)
  1. SPIRIVA [Suspect]
     Indication: CHRONIC OBSTRUCTIVE PULMONARY DISEASE
     Dosage: 18 MCG (18 ,CG , 1 IN 1 D) , IH
     Route: 055
     Dates: start: 20060310
  2. PEPCID (PEPCIDDUAL) [Concomitant]
  3. ASPIRIN [Suspect]
  4. ACETAMINOPHEN [Suspect]

REACTIONS (2)
  - ARTHRALGIA [None]
  - URINARY TRACT INFECTION [None]
